FAERS Safety Report 7293041-0 (Version None)
Quarter: 2011Q1

REPORT INFORMATION
  Report Type: 
  Country: None (occurrence: None)
  Receive Date: 20110215
  Receipt Date: 20110210
  Transmission Date: 20110831
  Serious: Yes (Other)
  Sender: FDA-Public Use
  Company Number: US-PFIZER INC-US-WYE-H18430910

PATIENT
  Age: 50 Year
  Sex: Male

DRUGS (3)
  1. PRISTIQ [Suspect]
     Indication: DEPRESSION
     Dosage: 50 MG, 1X/DAY
     Route: 048
     Dates: start: 20100401, end: 20100701
  2. PRISTIQ [Suspect]
     Dosage: 100 MG, 1X/DAY
     Route: 048
     Dates: start: 20100701, end: 20101025
  3. ZOLOFT [Suspect]
     Indication: DEPRESSION
     Dosage: 50-100 MG, DAILY
     Dates: end: 20100401

REACTIONS (5)
  - LIBIDO DECREASED [None]
  - BLOOD PRESSURE INCREASED [None]
  - DRUG EFFECT DECREASED [None]
  - MYDRIASIS [None]
  - STRESS [None]
